FAERS Safety Report 8915024 (Version 1)
Quarter: 2012Q4

REPORT INFORMATION
  Report Type: 
  Country: US (occurrence: US)
  Receive Date: 20121116
  Receipt Date: 20121116
  Transmission Date: 20130627
  Serious: Yes (Other)
  Sender: FDA-Public Use
  Company Number: US-GLAXOSMITHKLINE-A0998890A

PATIENT
  Age: 74 Year
  Sex: Male
  Weight: 79.5 kg

DRUGS (8)
  1. ADVAIR [Suspect]
     Indication: CHRONIC OBSTRUCTIVE PULMONARY DISEASE
     Dosage: 1PUFF Twice per day
     Route: 055
     Dates: end: 20121022
  2. UNSPECIFIED INGREDIENT [Suspect]
     Indication: ORAL CANDIDIASIS
     Route: 065
  3. THEOPHYLLINE [Concomitant]
  4. ASPIRIN [Concomitant]
  5. METOPROLOL TARTRATE [Concomitant]
  6. LEVOTHYROXINE [Concomitant]
  7. TAMSULOSIN [Concomitant]
  8. NIFEDIPINE [Concomitant]

REACTIONS (4)
  - Oesophageal candidiasis [Recovering/Resolving]
  - Oropharyngeal pain [Recovering/Resolving]
  - Oral candidiasis [Recovering/Resolving]
  - Drug ineffective [Recovering/Resolving]
